FAERS Safety Report 4799972-5 (Version None)
Quarter: 2005Q4

REPORT INFORMATION
  Report Type: 
  Country: None (occurrence: None)
  Receive Date: 20051012
  Receipt Date: 20051012
  Transmission Date: 20060501
  Serious: Yes (Death)
  Sender: FDA-Public Use
  Company Number: None

PATIENT
  Age: 65 Year
  Sex: Male
  Weight: 77.6 kg

DRUGS (3)
  1. CHLORPROMAZINE [Suspect]
     Indication: HICCUPS
     Dosage: 25MG IV TID PRN
     Route: 042
     Dates: start: 20050726, end: 20050729
  2. MORPHINE SULFATE [Suspect]
     Indication: PAIN
     Dosage: PCA IV
     Route: 042
     Dates: start: 20050722, end: 20050728
  3. REGLAN [Concomitant]

REACTIONS (2)
  - CONVULSION [None]
  - MENTAL STATUS CHANGES [None]
